FAERS Safety Report 17885619 (Version 1)
Quarter: 2020Q2

REPORT INFORMATION
  Report Type: Spontaneous
  Country: US (occurrence: US)
  Receive Date: 20200611
  Receipt Date: 20200611
  Transmission Date: 20200714
  Serious: Yes (Other)
  Sender: FDA-Public Use
  Company Number: US-PURDUE-USA-2020-0151752

PATIENT
  Sex: Female

DRUGS (3)
  1. SOMA [Suspect]
     Active Substance: CARISOPRODOL
     Indication: INJURY
     Dosage: UNK
     Route: 048
     Dates: start: 2007
  2. TRAMADOL. [Suspect]
     Active Substance: TRAMADOL
     Indication: INJURY
     Dosage: UNK
     Route: 048
     Dates: start: 2007, end: 2012
  3. HYDROCODONE BITARTRATE (SIMILAR TO NDA 206627) [Suspect]
     Active Substance: HYDROCODONE BITARTRATE
     Indication: INJURY
     Dosage: 7.5MG
     Route: 048

REACTIONS (11)
  - Drug dependence [Unknown]
  - Gastrointestinal ulcer [Unknown]
  - Appendicectomy [Unknown]
  - Dyspepsia [Unknown]
  - Drug abuse [Unknown]
  - Pyloric stenosis [Unknown]
  - Cholecystectomy [Unknown]
  - Hospitalisation [Unknown]
  - Impaired gastric emptying [Unknown]
  - Hiatus hernia [Unknown]
  - Oesophagitis [Unknown]
